FAERS Safety Report 6161021-4 (Version None)
Quarter: 2009Q2

REPORT INFORMATION
  Report Type: 
  Country: None (occurrence: None)
  Receive Date: 20090420
  Receipt Date: 20090408
  Transmission Date: 20091009
  Serious: Yes (Other)
  Sender: FDA-Public Use
  Company Number: JP-PFIZER INC-2009192237

PATIENT

DRUGS (6)
  1. ALDACTONE [Suspect]
     Indication: ASCITES
     Dosage: UNK
     Route: 048
     Dates: start: 20090218
  2. FUROSEMIDE [Suspect]
     Indication: ASCITES
  3. TAKEPRON [Concomitant]
  4. LIVACT [Concomitant]
  5. MONILAC [Concomitant]
  6. PREDNISOLONE [Concomitant]

REACTIONS (2)
  - BLOOD POTASSIUM INCREASED [None]
  - PLATELET COUNT DECREASED [None]
